FAERS Safety Report 19849622 (Version 6)
Quarter: 2024Q1

REPORT INFORMATION
  Report Type: Spontaneous
  Country: CA (occurrence: None)
  Receive Date: 20210917
  Receipt Date: 20240226
  Transmission Date: 20240410
  Serious: Yes (Hospitalization, Congenital Anomaly, Other)
  Sender: FDA-Public Use
  Company Number: 2021A721982

PATIENT
  Age: 35 Year
  Sex: Female

DRUGS (5)
  1. ESOMEPRAZOLE [Suspect]
     Active Substance: ESOMEPRAZOLE
     Indication: Product used for unknown indication
     Dosage: UNK
  2. AZATHIOPRINE [Suspect]
     Active Substance: AZATHIOPRINE
     Indication: Product used for unknown indication
     Dosage: UNK
  3. RANITIDINE [Suspect]
     Active Substance: RANITIDINE
     Indication: Product used for unknown indication
     Dosage: UNK
  4. FIBRINOGEN HUMAN [Suspect]
     Active Substance: FIBRINOGEN HUMAN
     Indication: Drug therapy
     Dosage: 12 G
     Route: 042
  5. MESALAMINE [Suspect]
     Active Substance: MESALAMINE
     Indication: Colitis ulcerative
     Dosage: UNK

REACTIONS (8)
  - Congenital dysfibrinogenaemia [Recovered/Resolved]
  - Foetal anaemia [Recovered/Resolved]
  - Foetal growth restriction [Recovered/Resolved]
  - Foetal-maternal haemorrhage [Recovered/Resolved]
  - Haemorrhage foetal [Recovered/Resolved]
  - Haemorrhage in pregnancy [Recovered/Resolved]
  - Infusion site thrombosis [Unknown]
  - Maternal exposure during pregnancy [Unknown]
